FAERS Safety Report 4786193-5 (Version None)
Quarter: 2005Q4

REPORT INFORMATION
  Report Type: 
  Country: None (occurrence: None)
  Receive Date: 20051003
  Receipt Date: 20051003
  Transmission Date: 20060501
  Serious: Yes (Other)
  Sender: FDA-Public Use
  Company Number: None

PATIENT
  Age: 9 Year
  Sex: Male
  Weight: 38.5557 kg

DRUGS (2)
  1. STRATTERA [Suspect]
     Indication: ATTENTION DEFICIT/HYPERACTIVITY DISORDER
     Dosage: 20-40 MG 1XDAY PO
     Route: 048
     Dates: start: 20030201, end: 20030301
  2. RITALIN LA [Concomitant]

REACTIONS (2)
  - AFFECTIVE DISORDER [None]
  - ANGER [None]
